FAERS Safety Report 7262738-0 (Version None)
Quarter: 2011Q1

REPORT INFORMATION
  Report Type: 
  Country: None (occurrence: None)
  Receive Date: 20110130
  Receipt Date: 20100926
  Transmission Date: 20110831
  Serious: No
  Sender: FDA-Public Use
  Company Number: US-ABBOTT-10P-163-0673887-00

PATIENT
  Age: 68 Year
  Sex: Female

DRUGS (7)
  1. SYNTHROID [Concomitant]
  2. EVISTA [Concomitant]
     Indication: BONE DISORDER
  3. HUMIRA [Suspect]
     Indication: RHEUMATOID ARTHRITIS
     Dates: start: 20100401
  4. SYNTHROID [Concomitant]
     Indication: THYROID DISORDER
  5. OXYCODONE [Concomitant]
     Indication: PRODUCT USED FOR UNKNOWN INDICATION
  6. TYLENOL-500 [Concomitant]
     Indication: PRODUCT USED FOR UNKNOWN INDICATION
  7. HYDROCHLOROTHIAZIDE [Concomitant]
     Indication: FLUID RETENTION

REACTIONS (3)
  - TOOTHACHE [None]
  - PAIN IN JAW [None]
  - PAIN [None]
